FAERS Safety Report 4677906-1 (Version None)
Quarter: 2005Q2

REPORT INFORMATION
  Report Type: 
  Country: None (occurrence: None)
  Receive Date: 20050531
  Receipt Date: 20050523
  Transmission Date: 20051028
  Serious: Yes (Other)
  Sender: FDA-Public Use
  Company Number: JP-JNJFOC-20041005651

PATIENT
  Age: 38 Year
  Sex: Female
  Weight: 41.5 kg

DRUGS (7)
  1. LEUKERAN [Suspect]
     Indication: CROHN'S DISEASE
     Route: 048
  2. REMICADE [Suspect]
     Indication: CROHN'S DISEASE
     Dosage: 5MGK PER DAY
     Route: 042
     Dates: start: 20040420
  3. MERCAPTOPURINE [Concomitant]
     Indication: DRUG USE FOR UNKNOWN INDICATION
     Route: 048
  4. HYDROCORTISONE [Concomitant]
     Indication: CROHN'S DISEASE
     Route: 042
  5. MESALAMINE [Concomitant]
     Indication: CROHN'S DISEASE
     Route: 048
  6. LOPERAMIDE [Concomitant]
     Indication: CROHN'S DISEASE
     Route: 048
  7. ENTERAL NUTRITION [Concomitant]
     Indication: DRUG USE FOR UNKNOWN INDICATION

REACTIONS (2)
  - ANAEMIA [None]
  - PYLORIC STENOSIS [None]
